FAERS Safety Report 6724507-7 (Version None)
Quarter: 2010Q2

REPORT INFORMATION
  Report Type: 
  Country: None (occurrence: None)
  Receive Date: 20100513
  Receipt Date: 20100504
  Transmission Date: 20101027
  Serious: Yes (Other)
  Sender: FDA-Public Use
  Company Number: US-PFIZER INC-2010056186

PATIENT
  Sex: Female

DRUGS (2)
  1. CALAN [Suspect]
     Indication: HYPERTENSION
     Dosage: 240 MG, UNK
  2. NEURONTIN [Concomitant]

REACTIONS (1)
  - HEART RATE DECREASED [None]
